FAERS Safety Report 9499356 (Version 1)
Quarter: 2013Q3

REPORT INFORMATION
  Report Type: Spontaneous
  Country: GR (occurrence: GR)
  Receive Date: 20130905
  Receipt Date: 20130905
  Transmission Date: 20140515
  Serious: Yes (Other)
  Sender: FDA-Public Use
  Company Number: GR-JNJFOC-20130900762

PATIENT
  Age: 87 Year
  Sex: Male

DRUGS (9)
  1. ZYRTEC [Suspect]
     Route: 065
  2. ZYRTEC [Suspect]
     Indication: RASH
     Route: 065
     Dates: start: 2013
  3. LYRICA [Suspect]
     Indication: DIABETIC NEUROPATHY
     Route: 065
     Dates: start: 2006
  4. MAGNESIUM ASPARTATE HYDROCHLORIDE [Concomitant]
     Indication: PRODUCT USED FOR UNKNOWN INDICATION
     Route: 065
  5. INSULIN [Concomitant]
     Route: 065
  6. MODURETIC [Concomitant]
     Route: 065
  7. SEVIKAR [Concomitant]
     Dosage: PART OF SEVIKAR (COMBINATION OF AMLODIPINE AND OLMESARTAN MEDOXOMIL)
     Route: 065
  8. ADENURIC [Concomitant]
     Route: 065
  9. PANTOPRAZOLE [Concomitant]
     Indication: PRODUCT USED FOR UNKNOWN INDICATION
     Route: 065

REACTIONS (3)
  - Blood uric acid increased [Unknown]
  - Cardiac pacemaker insertion [Unknown]
  - Drug ineffective [Unknown]
